FAERS Safety Report 7449070-7 (Version None)
Quarter: 2011Q2

REPORT INFORMATION
  Report Type: 
  Country: None (occurrence: None)
  Receive Date: 20110502
  Receipt Date: 20081226
  Transmission Date: 20111010
  Serious: Yes (Death, Other)
  Sender: FDA-Public Use
  Company Number: US-BAYER-200841440NA

PATIENT
  Age: 65 Year
  Sex: Female
  Weight: 124.72 kg

DRUGS (16)
  1. TRASYLOL [Suspect]
     Indication: MITRAL VALVE REPLACEMENT
  2. MANNITOL [Concomitant]
     Dosage: UNK
     Route: 042
     Dates: start: 20021220
  3. MILRINONE [Concomitant]
     Dosage: UNK
     Route: 042
     Dates: start: 20021220
  4. PLATELETS [Concomitant]
     Dosage: 12 U, UNK
     Dates: start: 20021220
  5. LASIX [Concomitant]
     Dosage: UNK
  6. KLOR-CON [Concomitant]
     Dosage: 10 MEQ, UNK
     Route: 048
  7. PLASMA [Concomitant]
     Dosage: 4 U, UNK
     Dates: start: 20021220
  8. TRASYLOL [Suspect]
     Indication: AORTIC VALVE REPLACEMENT
     Dosage: UNK
     Route: 042
     Dates: start: 20021220
  9. ZOSYN [Concomitant]
     Dosage: UNK
     Route: 042
     Dates: start: 20021220
  10. TRAZODONE HCL [Concomitant]
     Dosage: 100 MG, QD
     Route: 048
  11. LASIX [Concomitant]
     Dosage: 40 MG, QD
     Route: 048
  12. RED BLOOD CELLS, CONCENTRATED [Concomitant]
     Dosage: 6 U, UNK
     Dates: start: 20021220
  13. VERAPAMIL [Concomitant]
     Dosage: 180 MG, QD
     Route: 048
  14. LEVOPHED [Concomitant]
     Dosage: UNK
     Route: 042
     Dates: start: 20021220
  15. VANCOMYCIN [Concomitant]
     Dosage: UNK
     Route: 042
     Dates: start: 20021220
  16. CRYOPRECIPITATES [Concomitant]
     Dosage: 10 U, UNK
     Route: 042
     Dates: start: 20021220, end: 20021220

REACTIONS (14)
  - RESPIRATORY ARREST [None]
  - RENAL IMPAIRMENT [None]
  - RESPIRATORY FAILURE [None]
  - RENAL INJURY [None]
  - STRESS [None]
  - EMOTIONAL DISTRESS [None]
  - FEAR [None]
  - ANXIETY [None]
  - DEATH [None]
  - MULTI-ORGAN FAILURE [None]
  - RENAL FAILURE [None]
  - CEREBROVASCULAR ACCIDENT [None]
  - UNEVALUABLE EVENT [None]
  - PAIN [None]
